FAERS Safety Report 8285809-9 (Version None)
Quarter: 2012Q2

REPORT INFORMATION
  Report Type: 
  Country: None (occurrence: None)
  Receive Date: 20120413
  Receipt Date: 20120404
  Transmission Date: 20120825
  Serious: Yes (Other)
  Sender: FDA-Public Use
  Company Number: DE-ELI_LILLY_AND_COMPANY-DE201204001486

PATIENT
  Sex: Female

DRUGS (7)
  1. METOPROLOL TARTRATE [Concomitant]
     Dosage: 95 MG, QD
  2. FORTEO [Suspect]
     Indication: OSTEOPOROSIS
     Dosage: UNK, QD
     Route: 058
     Dates: start: 20110525, end: 20111215
  3. TORSEMIDE [Concomitant]
     Dosage: UNK, BID
  4. CALCIUM W/VITAMIN D NOS [Concomitant]
     Dosage: UNK, QD
  5. FALITHROM [Concomitant]
     Dosage: UNK, QD
  6. RAMIPRIL [Concomitant]
     Dosage: 50 MG, BID
  7. SIMVASTATIN [Concomitant]
     Dosage: 20 MG, QD

REACTIONS (1)
  - PLASMACYTOMA [None]
